FAERS Safety Report 11828752 (Version 4)
Quarter: 2016Q2

REPORT INFORMATION
  Report Type: Spontaneous
  Country: US (occurrence: US)
  Receive Date: 20151211
  Receipt Date: 20160503
  Transmission Date: 20160815
  Serious: Yes (Hospitalization, Other)
  Sender: FDA-Public Use
  Company Number: US-BAUSCH-BL-2015-010605

PATIENT
  Age: 32 Year
  Sex: Female

DRUGS (15)
  1. XENAZINE [Suspect]
     Active Substance: TETRABENAZINE
     Route: 048
     Dates: start: 20150507
  2. CYMBALTA [Concomitant]
     Active Substance: DULOXETINE HYDROCHLORIDE
     Indication: PRODUCT USED FOR UNKNOWN INDICATION
     Route: 048
  3. CENTRUM COMPLETE [Concomitant]
     Indication: PRODUCT USED FOR UNKNOWN INDICATION
     Route: 048
  4. FISH OIL [Concomitant]
     Active Substance: FISH OIL
     Indication: PRODUCT USED FOR UNKNOWN INDICATION
     Route: 048
  5. XENAZINE [Suspect]
     Active Substance: TETRABENAZINE
     Indication: PARKINSON^S DISEASE
     Route: 048
     Dates: start: 201505, end: 2015
  6. KLONOPIN [Concomitant]
     Active Substance: CLONAZEPAM
     Indication: PRODUCT USED FOR UNKNOWN INDICATION
     Route: 048
  7. NEURONTIN [Concomitant]
     Active Substance: GABAPENTIN
     Indication: PRODUCT USED FOR UNKNOWN INDICATION
     Route: 048
  8. ACIDOPHILUS [Concomitant]
     Active Substance: LACTOBACILLUS ACIDOPHILUS
     Indication: PRODUCT USED FOR UNKNOWN INDICATION
     Route: 048
  9. XENAZINE [Suspect]
     Active Substance: TETRABENAZINE
     Indication: DYSKINESIA
     Route: 048
     Dates: start: 20150304
  10. XENAZINE [Suspect]
     Active Substance: TETRABENAZINE
     Indication: HUNTINGTON^S DISEASE
     Route: 048
     Dates: start: 201309, end: 201512
  11. VISTARIL [Concomitant]
     Active Substance: HYDROXYZINE PAMOATE
     Indication: PRODUCT USED FOR UNKNOWN INDICATION
     Route: 048
  12. PRILOSEC [Concomitant]
     Active Substance: OMEPRAZOLE MAGNESIUM
     Indication: PRODUCT USED FOR UNKNOWN INDICATION
     Route: 048
  13. RANITIDINE. [Concomitant]
     Active Substance: RANITIDINE
     Indication: PRODUCT USED FOR UNKNOWN INDICATION
     Route: 048
  14. VITAMIN D [Concomitant]
     Active Substance: CHOLECALCIFEROL
     Indication: PRODUCT USED FOR UNKNOWN INDICATION
     Route: 048
  15. VITAMIN E [Concomitant]
     Active Substance: .ALPHA.-TOCOPHEROL
     Indication: PRODUCT USED FOR UNKNOWN INDICATION
     Route: 048

REACTIONS (20)
  - Rash pruritic [Not Recovered/Not Resolved]
  - Back pain [Unknown]
  - Restless legs syndrome [Unknown]
  - Oedema [Unknown]
  - Amnesia [Unknown]
  - Asthenia [Not Recovered/Not Resolved]
  - Gait disturbance [Unknown]
  - Tremor [Unknown]
  - Pain in extremity [Unknown]
  - Photopsia [Unknown]
  - Papule [Not Recovered/Not Resolved]
  - Muscle twitching [Not Recovered/Not Resolved]
  - Rash [Not Recovered/Not Resolved]
  - Aphasia [Not Recovered/Not Resolved]
  - Peripheral swelling [Unknown]
  - Fall [Not Recovered/Not Resolved]
  - Drug dose omission [Unknown]
  - Ligament sprain [Unknown]
  - Vision blurred [Unknown]
  - Muscle spasms [Unknown]

NARRATIVE: CASE EVENT DATE: 201503
